FAERS Safety Report 9315070 (Version 3)
Quarter: 2013Q4

REPORT INFORMATION
  Report Type: Spontaneous
  Country: GB (occurrence: None)
  Receive Date: 20130524
  Receipt Date: 20131106
  Transmission Date: 20140711
  Serious: Yes (Other)
  Sender: FDA-Public Use
  Company Number: AUR-APL-2013-04188

PATIENT
  Age: 71 Year
  Sex: Female

DRUGS (6)
  1. BISOPROLOL [Suspect]
     Indication: PRODUCT USED FOR UNKNOWN INDICATION
     Dosage: 7.5 MG (2.5 MG, 3 IN 1 D), ORAL
     Dates: start: 20130412, end: 20130414
  2. ADCAL (CARBAZOCHROME) [Concomitant]
  3. ALENDRONIC ACID (ALENDRONIC ACID) [Concomitant]
  4. CLOPIDOGREL (CLOPIDOGREL) [Concomitant]
  5. RANITIDINE (RANITIDINE) [Concomitant]
  6. SIMVASTATIN (SIMVASTATIN) [Concomitant]

REACTIONS (4)
  - Rash generalised [None]
  - Burning sensation [None]
  - Pain [None]
  - Rash erythematous [None]
